FAERS Safety Report 4694656-6 (Version None)
Quarter: 2005Q2

REPORT INFORMATION
  Report Type: 
  Country: None (occurrence: None)
  Receive Date: 20050620
  Receipt Date: 20050518
  Transmission Date: 20051028
  Serious: Yes (Other)
  Sender: FDA-Public Use
  Company Number: CA-GLAXOSMITHKLINE-A0560265A

PATIENT
  Age: 51 Year
  Sex: Male
  Weight: 84.1 kg

DRUGS (1)
  1. AVANDIA [Suspect]
     Indication: DRUG USE FOR UNKNOWN INDICATION
     Route: 048
     Dates: start: 20041104, end: 20041212

REACTIONS (2)
  - DYSPNOEA [None]
  - DYSPNOEA EXERTIONAL [None]
